FAERS Safety Report 4268793-4 (Version None)
Quarter: 2004Q1

REPORT INFORMATION
  Report Type: 
  Country: None (occurrence: None)
  Receive Date: 20040108
  Receipt Date: 20031224
  Transmission Date: 20041129
  Serious: Yes (Hospitalization)
  Sender: FDA-Public Use
  Company Number: F01200301539

PATIENT
  Age: 62 Year
  Sex: Female

DRUGS (13)
  1. (OXALIPLATIN) - SOLUTION - 130 MG/M2 (CAPECITABINE) - TABLET - 1000 MG [Suspect]
     Indication: COLORECTAL CANCER METASTATIC
     Dosage: 130 MG/M2 Q3W
     Route: 042
     Dates: start: 20031008
  2. (CAPECITABINE) - TABLET- 1000 MG/M2 [Suspect]
     Dosage: 1000 MG/M2 TWICE A DAY FROM 01 TO 014, Q3W
     Route: 048
     Dates: start: 20031008
  3. PERCOCET (ACTEMAINOPHEN/OXYCODONE HCL) [Concomitant]
  4. ATENOLOL [Concomitant]
  5. LISINOPRIL [Concomitant]
  6. HYDROCHLOROTHIAZIDE [Concomitant]
  7. COMPAZINE (PROCHLORPERAZINE EPISYLATE) [Concomitant]
  8. CELEBREX [Concomitant]
  9. NEXIUM [Concomitant]
  10. VICODIN (ACETAMINOPHEN/HYDROCODONE TARTRATE) [Concomitant]
  11. PHENERGAN [Concomitant]
  12. DIFLUCAN (CLUCONAZOLE) [Concomitant]
  13. OXYCODONE HCL [Concomitant]

REACTIONS (1)
  - RESPIRATORY DISTRESS [None]
